FAERS Safety Report 9856617 (Version 1)
Quarter: 2014Q1

REPORT INFORMATION
  Report Type: Spontaneous
  Country: IT (occurrence: IT)
  Receive Date: 20140130
  Receipt Date: 20140130
  Transmission Date: 20141002
  Serious: Yes (Hospitalization)
  Sender: FDA-Public Use
  Company Number: IT-TEVA-457384ISR

PATIENT
  Age: 49 Year
  Sex: Male
  Weight: 80 kg

DRUGS (2)
  1. CALCIO LEVOFOLINATO TEVA [Suspect]
     Indication: COLON CANCER
     Dosage: 100 MG/M2 DAILY; POWDER FOR SOLUTION FOR INTRAVENOUS INFUSION
     Route: 042
     Dates: start: 20140113, end: 20140113
  2. OXALIPLATINO TEVA [Suspect]
     Indication: COLON CANCER
     Dosage: 85 MG/M2 DAILY;
     Route: 042
     Dates: start: 20140113, end: 20140113

REACTIONS (2)
  - Anaphylactic shock [Recovered/Resolved]
  - Electrocardiogram abnormal [Recovered/Resolved]
